FAERS Safety Report 8756715 (Version 1)
Quarter: 2012Q4

REPORT INFORMATION
  Report Type: 
  Country: JP (occurrence: JP)
  Receive Date: 20120828
  Receipt Date: 20120828
  Transmission Date: 20130627
  Serious: Yes (Death)
  Sender: FDA-Public Use
  Company Number: PHHY2012JP073958

PATIENT
  Age: 71 Year
  Sex: Female

DRUGS (3)
  1. CICLOSPORIN [Suspect]
     Indication: INTERSTITIAL LUNG DISEASE
  2. METHYLPREDNISOLONE [Suspect]
     Indication: INTERSTITIAL LUNG DISEASE
  3. CYCLOPHOSPHAMIDE [Suspect]
     Indication: INTERSTITIAL LUNG DISEASE

REACTIONS (5)
  - Diffuse alveolar damage [Fatal]
  - Interstitial lung disease [Fatal]
  - Respiratory disorder [Fatal]
  - Drug ineffective [Fatal]
  - Disease progression [Fatal]
